FAERS Safety Report 9559886 (Version 1)
Quarter: 2013Q3

REPORT INFORMATION
  Report Type: Spontaneous
  Country: US (occurrence: None)
  Receive Date: 20130909
  Receipt Date: 20130909
  Transmission Date: 20140515
  Serious: Yes (Other)
  Sender: FDA-Public Use
  Company Number: 380520

PATIENT
  Age: 65 Year
  Sex: Female
  Weight: 77.1 kg

DRUGS (9)
  1. VICTOZA (LIRAGLUTIDE) SOLUTION FOR INJECTION, 6MG/ML [Suspect]
     Indication: TYPE 2 DIABETES MELLITUS
     Dosage: 1.8 MG QD, SUBCUTANEOUS
     Route: 058
     Dates: start: 20130418, end: 20130604
  2. NOVOLIN 70/30 (INSULIN HUMAN) [Concomitant]
  3. METFORMIN (METFORMIN) [Concomitant]
  4. ELOCON (MOMETASONE FUROATE) [Concomitant]
  5. ADIPEX-P (PHENTERMINE HYDROCHLORIDE) [Concomitant]
  6. TYLENOL WITH CODEINE NO. 4 (CODEINE PHOSPHATE, PARACETAMOLZ) [Concomitant]
  7. LASIX (FUROSEMIDE) [Concomitant]
  8. ANTIVERT (MECLOZINE HYDROCHLORIDE, NICOTINIC ACID) [Concomitant]
  9. KLOR-CON M20 (POTASSIUM CHLORIDE) [Concomitant]

REACTIONS (1)
  - Pancreatitis [None]
